FAERS Safety Report 18324494 (Version 2)
Quarter: 2020Q4

REPORT INFORMATION
  Report Type: Spontaneous
  Country: FR (occurrence: FR)
  Receive Date: 20200929
  Receipt Date: 20201020
  Transmission Date: 20210113
  Serious: Yes (Other)
  Sender: FDA-Public Use
  Company Number: FR-RECORDATI RARE DISEASES INC.-FR-R13005-20-00126

PATIENT
  Age: 56 Year
  Sex: Female

DRUGS (2)
  1. DACTINOMYCIN [Suspect]
     Active Substance: DACTINOMYCIN
     Indication: ACUTE MYELOID LEUKAEMIA
     Route: 065
  2. SORAFENIB [Suspect]
     Active Substance: SORAFENIB
     Indication: ACUTE MYELOID LEUKAEMIA
     Route: 048

REACTIONS (5)
  - Graft versus host disease [Unknown]
  - Rash [Unknown]
  - Product use in unapproved indication [Unknown]
  - Gastrointestinal toxicity [Unknown]
  - Off label use [Unknown]
